FAERS Safety Report 7003601-X (Version None)
Quarter: 2010Q3

REPORT INFORMATION
  Report Type: 
  Country: None (occurrence: None)
  Receive Date: 20100917
  Receipt Date: 20100907
  Transmission Date: 20110219
  Serious: Yes (Disabling)
  Sender: FDA-Public Use
  Company Number: TRP_06428_2009

PATIENT
  Sex: Male
  Weight: 74.8435 kg

DRUGS (11)
  1. INFERGEN [Suspect]
     Indication: HEPATITIS C
     Dosage: (15 ?G QD SUBCUTANEOUS)
     Route: 058
     Dates: start: 20090627, end: 20090904
  2. RIBAVIRIN [Suspect]
     Indication: HEPATITIS C
     Dosage: (1000 MG, [600 MG QAM AND 400 MG QPM] ORAL), (DF)
     Route: 048
     Dates: start: 20070501, end: 20080501
  3. RIBAVIRIN [Suspect]
     Indication: HEPATITIS C
     Dosage: (1000 MG, [600 MG QAM AND 400 MG QPM] ORAL), (DF)
     Route: 048
     Dates: start: 20090627, end: 20090902
  4. PEGASYS [Suspect]
     Indication: HEPATITIS C
     Dosage: (DF)
     Dates: start: 20070501, end: 20080501
  5. CITALOPRAM HYDROBROMIDE [Concomitant]
  6. LOSARTAN POTASSIUM [Concomitant]
  7. TRAZODONE HCL [Concomitant]
  8. VARDENAFIL HYDROCHLORIDE (LEVITRA) [Concomitant]
  9. LISINOPRIL [Concomitant]
  10. ASPIRIN [Concomitant]
  11. GABAPENTIN [Concomitant]

REACTIONS (40)
  - AGITATION [None]
  - ANXIETY [None]
  - APRAXIA [None]
  - BLOOD CALCIUM DECREASED [None]
  - BLOOD PRESSURE INCREASED [None]
  - BURNING SENSATION [None]
  - CEREBROVASCULAR ACCIDENT [None]
  - CONFUSIONAL STATE [None]
  - DECREASED INTEREST [None]
  - DELIRIUM [None]
  - DISORIENTATION [None]
  - DISTURBANCE IN ATTENTION [None]
  - DIZZINESS [None]
  - DYSARTHRIA [None]
  - DYSPHEMIA [None]
  - DYSPHORIA [None]
  - ENCEPHALOPATHY [None]
  - EXCESSIVE EYE BLINKING [None]
  - FRUSTRATION [None]
  - HALLUCINATION, AUDITORY [None]
  - HALLUCINATION, VISUAL [None]
  - HEADACHE [None]
  - HEART RATE DECREASED [None]
  - HEPATITIS C RNA [None]
  - HYPOAESTHESIA [None]
  - INSOMNIA [None]
  - IRRITABILITY [None]
  - MALAISE [None]
  - MEMORY IMPAIRMENT [None]
  - MENTAL IMPAIRMENT [None]
  - NAUSEA [None]
  - PAIN IN EXTREMITY [None]
  - PARANOIA [None]
  - PLATELET COUNT DECREASED [None]
  - POOR QUALITY SLEEP [None]
  - POST-TRAUMATIC STRESS DISORDER [None]
  - PROGRESSIVE MULTIFOCAL LEUKOENCEPHALOPATHY [None]
  - TEMPERATURE INTOLERANCE [None]
  - VASCULITIS [None]
  - WHITE BLOOD CELL COUNT DECREASED [None]
